FAERS Safety Report 6728657-0 (Version None)
Quarter: 2010Q2

REPORT INFORMATION
  Report Type: 
  Country: None (occurrence: None)
  Receive Date: 20100517
  Receipt Date: 20100506
  Transmission Date: 20101027
  Serious: Yes (Other)
  Sender: FDA-Public Use
  Company Number: KR-PFIZER INC-2010056873

PATIENT
  Sex: Male

DRUGS (2)
  1. ZELDOX [Suspect]
     Dosage: 40 MG, 1X/DAY, BEFORE SLEEP
     Route: 048
  2. XANAX [Suspect]
     Dosage: 1 TABLET, 2X/DAY
     Route: 048

REACTIONS (5)
  - ASTHENIA [None]
  - DELUSION [None]
  - DIZZINESS [None]
  - FEELING ABNORMAL [None]
  - GAIT DISTURBANCE [None]
